FAERS Safety Report 15481831 (Version 2)
Quarter: 2018Q4

REPORT INFORMATION
  Report Type: Spontaneous
  Country: US (occurrence: US)
  Receive Date: 20181010
  Receipt Date: 20181213
  Transmission Date: 20190205
  Serious: No
  Sender: FDA-Public Use
  Company Number: US-TAKEDA-2018MPI012253

PATIENT
  Sex: Female

DRUGS (2)
  1. NINLARO [Suspect]
     Active Substance: IXAZOMIB CITRATE
     Indication: THROMBOCYTOPENIA
  2. NINLARO [Suspect]
     Active Substance: IXAZOMIB CITRATE
     Indication: PLASMA CELL MYELOMA
     Dosage: 4 MG, UNK
     Route: 048
     Dates: start: 20180316

REACTIONS (7)
  - Diarrhoea [Unknown]
  - Blood pressure decreased [Unknown]
  - Fatigue [Unknown]
  - Off label use [Unknown]
  - Tooth disorder [Unknown]
  - Headache [Unknown]
  - Nausea [Unknown]
